FAERS Safety Report 10885004 (Version 1)
Quarter: 2015Q1

REPORT INFORMATION
  Report Type: Spontaneous
  Country: US (occurrence: US)
  Receive Date: 20150304
  Receipt Date: 20150304
  Transmission Date: 20150721
  Serious: Yes (Other)
  Sender: FDA-Public Use
  Company Number: US-PFIZER INC-2015075183

PATIENT
  Age: 56 Year
  Sex: Male
  Weight: 88 kg

DRUGS (1)
  1. DEPO-TESTOSTERONE [Suspect]
     Active Substance: TESTOSTERONE CYPIONATE
     Indication: BLOOD TESTOSTERONE DECREASED
     Dosage: UNK
     Route: 030
     Dates: end: 201406

REACTIONS (8)
  - Cardiac failure [Unknown]
  - Laziness [Unknown]
  - Decreased interest [Unknown]
  - Hunger [Unknown]
  - Stress [Unknown]
  - Loss of libido [Unknown]
  - Weight increased [Unknown]
  - Depression [Unknown]
